FAERS Safety Report 22319446 (Version 1)
Quarter: 2023Q2

REPORT INFORMATION
  Report Type: Spontaneous
  Country: US (occurrence: US)
  Receive Date: 20230515
  Receipt Date: 20230515
  Transmission Date: 20230721
  Serious: Yes (Hospitalization, Other)
  Sender: FDA-Public Use
  Company Number: US-GLAXOSMITHKLINE-US2023GSK067988

PATIENT

DRUGS (1)
  1. BUPROPION [Suspect]
     Active Substance: BUPROPION
     Indication: Major depression
     Dosage: UNK

REACTIONS (8)
  - Intentional overdose [Unknown]
  - Suicidal ideation [Unknown]
  - Agitation [Unknown]
  - Disorientation [Unknown]
  - Speech disorder [Unknown]
  - Eye movement disorder [Unknown]
  - Hypotonia [Unknown]
  - Tremor [Unknown]
